FAERS Safety Report 12849363 (Version 1)
Quarter: 2016Q4

REPORT INFORMATION
  Report Type: Spontaneous
  Country: IT (occurrence: IT)
  Receive Date: 20161014
  Receipt Date: 20161014
  Transmission Date: 20170207
  Serious: Yes (Other)
  Sender: FDA-Public Use
  Company Number: IT-MYLANLABS-2016M1042430

PATIENT

DRUGS (15)
  1. CROSCARMELLOSE SODIUM [Concomitant]
     Indication: PRODUCT USED FOR UNKNOWN INDICATION
  2. TALC [Concomitant]
     Active Substance: TALC
     Indication: PRODUCT USED FOR UNKNOWN INDICATION
     Dosage: UNK
  3. HYDROXYPROPYL CELLULOSE [Concomitant]
     Active Substance: HYDROXYPROPYL CELLULOSE
     Indication: PRODUCT USED FOR UNKNOWN INDICATION
  4. POLYVINYLPYRROLIDONE [Concomitant]
     Active Substance: POVIDONE
     Indication: PRODUCT USED FOR UNKNOWN INDICATION
  5. COENZYME Q10 [Concomitant]
     Active Substance: UBIDECARENONE
     Indication: PRODUCT USED FOR UNKNOWN INDICATION
     Dosage: UNK
  6. SILICON DIOXIDE [Concomitant]
     Active Substance: SILICON DIOXIDE
     Indication: PRODUCT USED FOR UNKNOWN INDICATION
     Dosage: UNK
  7. PANTORC [Concomitant]
     Active Substance: PANTOPRAZOLE SODIUM
     Indication: PRODUCT USED FOR UNKNOWN INDICATION
     Dosage: 20 MG, UNK
     Route: 048
  8. TIKLID [Concomitant]
     Active Substance: TICLOPIDINE HYDROCHLORIDE
     Indication: PRODUCT USED FOR UNKNOWN INDICATION
     Dosage: 500 MG, UNK
     Route: 048
  9. MICROCRYSTALLINE CELLULOSE [Concomitant]
     Indication: PRODUCT USED FOR UNKNOWN INDICATION
  10. CLARITHROMYCIN. [Suspect]
     Active Substance: CLARITHROMYCIN
     Indication: TOOTH ABSCESS
     Dosage: 500 MG, QD
     Route: 048
     Dates: start: 20160919, end: 20160923
  11. BLOPRESS [Concomitant]
     Active Substance: CANDESARTAN CILEXETIL
     Indication: PRODUCT USED FOR UNKNOWN INDICATION
     Dosage: 8 MG, UNK
     Route: 048
  12. ALENDRONATE SODIUM. [Concomitant]
     Active Substance: ALENDRONATE SODIUM
     Indication: PRODUCT USED FOR UNKNOWN INDICATION
  13. ARMOLIPID PLUS [Concomitant]
     Indication: SUPPLEMENTATION THERAPY
     Dosage: UNK
  14. PTEROYLMONOGLUTAMIC ACID [Concomitant]
     Indication: PRODUCT USED FOR UNKNOWN INDICATION
     Dosage: UNK
  15. MAGNESIUM STEARATE [Concomitant]
     Active Substance: MAGNESIUM STEARATE
     Indication: PRODUCT USED FOR UNKNOWN INDICATION
     Dosage: UNK

REACTIONS (3)
  - Auditory disorder [Recovered/Resolved]
  - Hallucinations, mixed [Recovered/Resolved]
  - Altered visual depth perception [Recovered/Resolved]

NARRATIVE: CASE EVENT DATE: 20160919
